FAERS Safety Report 6747658-X (Version None)
Quarter: 2010Q2

REPORT INFORMATION
  Report Type: 
  Country: None (occurrence: None)
  Receive Date: 20100528
  Receipt Date: 20100526
  Transmission Date: 20101027
  Serious: Yes (Other)
  Sender: FDA-Public Use
  Company Number: PHHY2010US24806

PATIENT
  Sex: Female

DRUGS (4)
  1. FANAPT [Suspect]
     Indication: AGITATION
     Dosage: 2 MG, BID
     Route: 048
     Dates: start: 20100326, end: 20100329
  2. LITHIUM [Concomitant]
     Dosage: 150 MG, UNK
     Route: 048
  3. TOPAMAX [Concomitant]
     Dosage: 250 MG, BID
     Route: 048
  4. TAZIDIME [Concomitant]
     Indication: SLEEP DISORDER
     Dosage: 100 MG, UNK
     Route: 048

REACTIONS (4)
  - BLOOD PRESSURE INCREASED [None]
  - DIZZINESS [None]
  - HEART RATE INCREASED [None]
  - HYPOAESTHESIA FACIAL [None]
